FAERS Safety Report 21878610 (Version 3)
Quarter: 2023Q1

REPORT INFORMATION
  Report Type: Spontaneous
  Country: CN (occurrence: CN)
  Receive Date: 20230118
  Receipt Date: 20230301
  Transmission Date: 20230418
  Serious: Yes (Hospitalization, Other)
  Sender: FDA-Public Use
  Company Number: CN-MLMSERVICE-20221230-4013891-1

PATIENT
  Age: 5 Decade
  Sex: Female

DRUGS (6)
  1. SIROLIMUS [Suspect]
     Active Substance: SIROLIMUS
     Indication: Immunosuppressant drug therapy
     Dosage: 1.5 MG, 1X/DAY
  2. CYCLOSPORINE [Suspect]
     Active Substance: CYCLOSPORINE
     Indication: Immunosuppressant drug therapy
     Dosage: 75 MG, Q12H
  3. ENTECAVIR [Suspect]
     Active Substance: ENTECAVIR
     Indication: Immunosuppressant drug therapy
     Dosage: 0.5 MG, 1X/DAY
  4. LENVATINIB [Suspect]
     Active Substance: LENVATINIB
     Indication: Immunosuppressant drug therapy
     Dosage: 8 MG, 1X/DAY
  5. MYCOPHENOLATE MOFETIL [Suspect]
     Active Substance: MYCOPHENOLATE MOFETIL
     Indication: Immunosuppressant drug therapy
     Dosage: 0.5 G Q12H
  6. TACROLIMUS [Suspect]
     Active Substance: TACROLIMUS
     Indication: Immunosuppressant drug therapy
     Dosage: 2 MG Q12H

REACTIONS (1)
  - Immune-mediated encephalitis [Unknown]
